FAERS Safety Report 6070978-1 (Version None)
Quarter: 2009Q1

REPORT INFORMATION
  Report Type: 
  Country: None (occurrence: None)
  Receive Date: 20090209
  Receipt Date: 20090203
  Transmission Date: 20090719
  Serious: Yes (Other)
  Sender: FDA-Public Use
  Company Number: A0766346A

PATIENT
  Age: 49 Year
  Sex: Male

DRUGS (4)
  1. VERAMYST [Suspect]
     Dosage: 2SPR PER DAY
     Route: 045
     Dates: start: 20080901, end: 20081123
  2. NEXIUM [Concomitant]
  3. ASPIRIN [Concomitant]
  4. XANAX [Concomitant]

REACTIONS (7)
  - ABDOMINAL PAIN LOWER [None]
  - ADRENAL INSUFFICIENCY [None]
  - ANOREXIA [None]
  - ANXIETY [None]
  - ARTHRALGIA [None]
  - DIARRHOEA [None]
  - NASOPHARYNGITIS [None]
